FAERS Safety Report 11141911 (Version 1)
Quarter: 2015Q2

REPORT INFORMATION
  Report Type: Spontaneous
  Country: None (occurrence: US)
  Receive Date: 20150527
  Receipt Date: 20150527
  Transmission Date: 20150821
  Serious: Yes (Other)
  Sender: FDA-Public Use
  Company Number: US-ALKERMES INC.-ALK-2015-000096

PATIENT

DRUGS (1)
  1. VIVITROL [Suspect]
     Active Substance: NALTREXONE
     Indication: ALCOHOLISM
     Dosage: 380 MG, QMO
     Route: 030
     Dates: start: 20150427

REACTIONS (5)
  - Alcohol use [Unknown]
  - Speech disorder [None]
  - Eyelid ptosis [Unknown]
  - Vomiting [None]
  - Coma [Unknown]

NARRATIVE: CASE EVENT DATE: 20150518
